FAERS Safety Report 12678922 (Version 1)
Quarter: 2016Q3

REPORT INFORMATION
  Report Type: Spontaneous
  Country: FR (occurrence: FR)
  Receive Date: 20160824
  Receipt Date: 20160824
  Transmission Date: 20161109
  Serious: Yes (Other)
  Sender: FDA-Public Use
  Company Number: FR-LEO PHARMA-242607

PATIENT
  Age: 64 Year
  Sex: Female

DRUGS (1)
  1. PICATO [Suspect]
     Active Substance: INGENOL MEBUTATE
     Indication: ACTINIC KERATOSIS
     Route: 061
     Dates: start: 20160606, end: 20160606

REACTIONS (7)
  - Application site vesicles [Recovering/Resolving]
  - Incorrect drug administration duration [Unknown]
  - Application site discolouration [Recovering/Resolving]
  - Drug administered at inappropriate site [Unknown]
  - Rash erythematous [Recovering/Resolving]
  - Burns second degree [Recovering/Resolving]
  - Application site pain [Recovering/Resolving]

NARRATIVE: CASE EVENT DATE: 20160606
